FAERS Safety Report 15805030 (Version 1)
Quarter: 2019Q1

REPORT INFORMATION
  Report Type: Spontaneous
  Country: GB (occurrence: GB)
  Receive Date: 20190110
  Receipt Date: 20190110
  Transmission Date: 20190417
  Serious: Yes (Other)
  Sender: FDA-Public Use
  Company Number: GB-TEVA-2019-GB-996729

PATIENT
  Age: 49 Year

DRUGS (4)
  1. SULFASALAZINE. [Interacting]
     Active Substance: SULFASALAZINE
     Dosage: 500 MILLIGRAM DAILY; INCREASED BY 500MG WEEKLY TO TARGET DOSE OF 1G TWICE A DAILY
     Route: 048
     Dates: start: 20180613
  2. SILYBUM MARIANUM [Concomitant]
     Active Substance: DIETARY SUPPLEMENT\HERBALS\MILK THISTLE
     Route: 065
  3. TURMERIC [Interacting]
     Active Substance: HERBALS\TURMERIC
     Route: 065
  4. SULFASALAZINE. [Suspect]
     Active Substance: SULFASALAZINE
     Indication: RHEUMATOID ARTHRITIS
     Dosage: 1500 MILLIGRAM DAILY; 1G IN THE MORNING AND 500MG AT NIGHT
     Route: 048
     Dates: end: 20180713

REACTIONS (7)
  - Oropharyngeal pain [Unknown]
  - Malaise [Unknown]
  - Potentiating drug interaction [Recovered/Resolved]
  - Alanine aminotransferase increased [Recovered/Resolved]
  - Glossodynia [Not Recovered/Not Resolved]
  - Mouth ulceration [Not Recovered/Not Resolved]
  - Rash generalised [Recovering/Resolving]

NARRATIVE: CASE EVENT DATE: 20180709
